FAERS Safety Report 18020902 (Version 4)
Quarter: 2020Q3

REPORT INFORMATION
  Report Type: Report from Study
  Country: None (occurrence: GB)
  Receive Date: 20200714
  Receipt Date: 20200901
  Transmission Date: 20201103
  Serious: Yes (Hospitalization)
  Sender: FDA-Public Use
  Company Number: GB-ABBVIE-20K-167-3406273-00

PATIENT
  Age: 58 Year
  Sex: Male

DRUGS (4)
  1. DUODOPA [Suspect]
     Active Substance: CARBIDOPA\LEVODOPA
     Dosage: CONTINUOUS RATE 3.7ML/HRS, EXTRA DOSE 1.8 MLS
     Route: 050
     Dates: start: 202008
  2. DUODOPA [Suspect]
     Active Substance: CARBIDOPA\LEVODOPA
     Dosage: 100ML CASSETTE 5MG/1ML 20MG/1ML DAILY, CONTINUOUS RATE 3.8MLS/ HOUR
     Route: 050
     Dates: end: 202008
  3. DUODOPA [Suspect]
     Active Substance: CARBIDOPA\LEVODOPA
     Dosage: 100ML CASSETTE AS DIRECTED, CONTINUOUS RATE 3.6MLS/HR
     Route: 050
  4. DUODOPA [Suspect]
     Active Substance: CARBIDOPA\LEVODOPA
     Indication: PARKINSON^S DISEASE
     Dosage: 100ML CASSETTE DAILY, 5MG/1ML 20MG/1ML DAILY
     Route: 050

REACTIONS (10)
  - Back pain [Not Recovered/Not Resolved]
  - Depression [Unknown]
  - Depressed mood [Unknown]
  - On and off phenomenon [Unknown]
  - Therapeutic product effect delayed [Unknown]
  - Muscle twitching [Not Recovered/Not Resolved]
  - Anxiety [Not Recovered/Not Resolved]
  - Dystonia [Unknown]
  - Frustration tolerance decreased [Unknown]
  - Disturbance in attention [Unknown]

NARRATIVE: CASE EVENT DATE: 202008
